FAERS Safety Report 24829598 (Version 2)
Quarter: 2025Q1

REPORT INFORMATION
  Report Type: Spontaneous
  Country: US (occurrence: US)
  Receive Date: 20250110
  Receipt Date: 20250129
  Transmission Date: 20250408
  Serious: Yes (Life-Threatening, Hospitalization)
  Sender: HETERO
  Company Number: US-AMAROX PHARMA-HET2024US05149

PATIENT
  Age: 89 Year
  Sex: Female

DRUGS (2)
  1. CAPECITABINE [Suspect]
     Active Substance: CAPECITABINE
     Indication: Linitis plastica
     Route: 065
  2. OXALIPLATIN [Suspect]
     Active Substance: OXALIPLATIN
     Indication: Linitis plastica
     Route: 065

REACTIONS (3)
  - Anal incontinence [Recovering/Resolving]
  - Electrolyte imbalance [Recovering/Resolving]
  - Diarrhoea [Recovered/Resolved]
